FAERS Safety Report 7880419-7 (Version None)
Quarter: 2011Q4

REPORT INFORMATION
  Report Type: 
  Country: None (occurrence: None)
  Receive Date: 20111101
  Receipt Date: 20111020
  Transmission Date: 20120403
  Serious: Yes (Other)
  Sender: FDA-Public Use
  Company Number: PHHY2011JP88581

PATIENT
  Sex: Male
  Weight: 72 kg

DRUGS (11)
  1. LIPIDIL [Concomitant]
     Dosage: 100 MG, UNK
     Route: 048
  2. BUP-4 [Concomitant]
     Dosage: 10 MG, UNK
     Route: 048
  3. AMARYL [Concomitant]
     Dosage: 1 MG, UNK
     Route: 048
  4. GLEEVEC [Suspect]
     Indication: CHRONIC MYELOID LEUKAEMIA
     Dosage: 400 MG DAILY
     Route: 048
     Dates: start: 20101102, end: 20110325
  5. FAMOTIDINE [Concomitant]
     Dosage: 20 MG, UNK
     Route: 048
  6. NEOMALLERMIN TR [Concomitant]
     Dosage: 6 MG, UNK
     Route: 048
  7. SELBEX [Concomitant]
     Dosage: 50 MG, UNK
  8. VOGLIBOSE [Concomitant]
     Dosage: 0.6 MG, UNK
     Route: 048
  9. ASPIRIN [Concomitant]
     Dosage: 100 MG, UNK
     Route: 048
  10. METFORMIN HCL [Concomitant]
     Dosage: 750 MG, UNK
     Route: 048
  11. ACTOS [Concomitant]
     Dosage: 30 MG, UNK
     Route: 048

REACTIONS (6)
  - OROPHARYNGEAL PLAQUE [None]
  - ORAL LICHEN PLANUS [None]
  - PARAKERATOSIS [None]
  - ORAL PAIN [None]
  - LYMPHOCYTIC INFILTRATION [None]
  - ORAL DISCOMFORT [None]
